FAERS Safety Report 8018930 (Version 3)
Quarter: 2012Q4

REPORT INFORMATION
  Report Type: 
  Country: GR (occurrence: GR)
  Receive Date: 20110701
  Receipt Date: 20120926
  Transmission Date: 20130627
  Serious: Yes (Other)
  Sender: FDA-Public Use
  Company Number: GR-AMGEN-GRCSP2011032280

PATIENT
  Age: 81 Year
  Sex: Female
  Weight: 65 kg

DRUGS (8)
  1. PROLIA [Suspect]
     Indication: OSTEOPOROSIS
     Dosage: UNK UNK, q6mo
     Route: 058
     Dates: start: 20110519
  2. COPALIA HCT [Suspect]
     Dosage: UNK
     Route: 048
     Dates: start: 201101
  3. CALCIORAL                          /00108001/ [Concomitant]
     Route: 048
  4. LOGIMAX [Concomitant]
  5. LONARID                            /00154101/ [Concomitant]
  6. METFORMIN [Concomitant]
     Dosage: 850 mg, UNK
     Route: 048
     Dates: start: 1998
  7. GLIMEPIRIDE [Concomitant]
     Dosage: 2 mg, UNK
     Route: 048
     Dates: start: 2010
  8. FISIOTENS [Concomitant]
     Dosage: 0.3 mg, UNK
     Route: 048
     Dates: start: 2009

REACTIONS (2)
  - Blood creatinine increased [Recovered/Resolved]
  - Blood urea increased [Recovered/Resolved]
